FAERS Safety Report 6733779-4 (Version None)
Quarter: 2010Q2

REPORT INFORMATION
  Report Type: 
  Country: None (occurrence: None)
  Receive Date: 20100520
  Receipt Date: 20100511
  Transmission Date: 20101027
  Serious: Yes (Hospitalization, Other)
  Sender: FDA-Public Use
  Company Number: IE-ASTRAZENECA-2010SE17396

PATIENT
  Sex: Male

DRUGS (3)
  1. NEXIUM [Suspect]
     Indication: GASTROOESOPHAGEAL REFLUX DISEASE
     Route: 048
     Dates: start: 20090529, end: 20090617
  2. ZOTON [Concomitant]
     Indication: DYSPEPSIA
     Route: 048
     Dates: start: 20090617, end: 20090626
  3. MOTILIUM [Concomitant]
     Dates: start: 20090529, end: 20090607

REACTIONS (2)
  - NEPHRITIS ALLERGIC [None]
  - UVEITIS [None]
